FAERS Safety Report 10478706 (Version 1)
Quarter: 2014Q3

REPORT INFORMATION
  Report Type: Spontaneous
  Country: US (occurrence: US)
  Receive Date: 20140926
  Receipt Date: 20140926
  Transmission Date: 20150326
  Serious: Yes (Other)
  Sender: FDA-Public Use
  Company Number: PHHY2014US124395

PATIENT
  Sex: Female

DRUGS (2)
  1. METHADONE [Suspect]
     Active Substance: METHADONE HYDROCHLORIDE
     Indication: PAIN
     Dosage: UNK UKN, UNK
     Route: 048
  2. BACLOFEN INTRATHECAL [Suspect]
     Active Substance: BACLOFEN
     Indication: MUSCLE SPASTICITY
     Dosage: 274.7 UG, PER DAY
     Route: 037

REACTIONS (5)
  - Joint dislocation [Unknown]
  - Developmental hip dysplasia [Unknown]
  - Arthralgia [Unknown]
  - Pain [Unknown]
  - Muscle spasms [Unknown]
